FAERS Safety Report 9865697 (Version 1)
Quarter: 2014Q1

REPORT INFORMATION
  Report Type: Spontaneous
  Country: US (occurrence: US)
  Receive Date: 20140203
  Receipt Date: 20140203
  Transmission Date: 20141002
  Serious: No
  Sender: FDA-Public Use
  Company Number: US-ALLERGAN-1307138US

PATIENT
  Sex: Female

DRUGS (3)
  1. RESTASIS [Suspect]
     Indication: DRY EYE
     Dosage: 2 GTT, BID
     Route: 047
     Dates: start: 201304
  2. VITAMINS NOS FOR EYES [Concomitant]
     Indication: SUPPLEMENTATION THERAPY
     Dosage: UNK
  3. CALCIUM [Concomitant]
     Indication: SUPPLEMENTATION THERAPY
     Dosage: UNK

REACTIONS (4)
  - Metamorphopsia [Unknown]
  - Visual impairment [Recovered/Resolved]
  - Metamorphopsia [Unknown]
  - Visual brightness [Unknown]
